FAERS Safety Report 7517674-9 (Version None)
Quarter: 2011Q2

REPORT INFORMATION
  Report Type: 
  Country: None (occurrence: None)
  Receive Date: 20110602
  Receipt Date: 20110525
  Transmission Date: 20111010
  Serious: Yes (Hospitalization)
  Sender: FDA-Public Use
  Company Number: US-BIOGENIDEC-2009BI038344

PATIENT
  Age: 47 Year
  Sex: Female

DRUGS (1)
  1. AVONEX [Suspect]
     Indication: MULTIPLE SCLEROSIS
     Route: 030
     Dates: start: 20020510, end: 20100104

REACTIONS (5)
  - BLINDNESS UNILATERAL [None]
  - STAPHYLOCOCCAL INFECTION [None]
  - THYROID FUNCTION TEST ABNORMAL [None]
  - BREAST CANCER STAGE II [None]
  - VISUAL ACUITY REDUCED [None]
